FAERS Safety Report 4784575-9 (Version None)
Quarter: 2005Q3

REPORT INFORMATION
  Report Type: 
  Country: None (occurrence: None)
  Receive Date: 20050929
  Receipt Date: 20050929
  Transmission Date: 20060218
  Serious: Yes (Other)
  Sender: FDA-Public Use
  Company Number: None

PATIENT
  Age: 79 Year
  Sex: Male
  Weight: 62.8 kg

DRUGS (9)
  1. LASIX [Suspect]
     Dosage: 40MG, 40MG QD, ORAL
     Route: 048
  2. CODEINE 30/ACETAMINOPHEN [Concomitant]
  3. ASPIRIN [Concomitant]
  4. BISACODYL [Concomitant]
  5. LANOXIN [Concomitant]
  6. HYDRALAZINE HCL [Concomitant]
  7. ISOSORBIDE DINITRATE [Concomitant]
  8. ARTIFICIAL TEARS POLYVINYL ALCOHOL [Concomitant]
  9. MULTI-VITAMIN [Concomitant]

REACTIONS (1)
  - RASH [None]
